FAERS Safety Report 11807737 (Version 2)
Quarter: 2016Q1

REPORT INFORMATION
  Report Type: Report from Study
  Country: DE (occurrence: DE)
  Receive Date: 20151207
  Receipt Date: 20160108
  Transmission Date: 20160525
  Serious: Yes (Other)
  Sender: FDA-Public Use
  Company Number: DE-BRISTOL-MYERS SQUIBB COMPANY-BMS-2015-083669

PATIENT
  Age: 83 Year
  Sex: Male
  Weight: 70.3 kg

DRUGS (6)
  1. FENTANYL MATRIX [Concomitant]
     Indication: PRODUCT USED FOR UNKNOWN INDICATION
     Dosage: 37.5 ?G, 2 TIMES/WK
     Route: 065
     Dates: start: 20141207, end: 20150721
  2. PREGABALIN. [Suspect]
     Active Substance: PREGABALIN
     Indication: PRODUCT USED FOR UNKNOWN INDICATION
     Dosage: 75 MG, UNK
     Route: 065
     Dates: start: 20141207, end: 20150721
  3. FENTANYL MATRIX [Concomitant]
     Dosage: 25 ?G, UNK
     Route: 065
     Dates: start: 20150721
  4. APIXABAN [Suspect]
     Active Substance: APIXABAN
     Indication: CEREBROVASCULAR ACCIDENT PROPHYLAXIS
     Dosage: 2.5 MG, BID
     Route: 048
     Dates: start: 20141124
  5. RISPERDAL [Concomitant]
     Active Substance: RISPERIDONE
     Indication: PRODUCT USED FOR UNKNOWN INDICATION
     Dosage: 0.5 MG, UNK
     Route: 065
     Dates: start: 20150703, end: 20150721
  6. PREGABALIN. [Suspect]
     Active Substance: PREGABALIN
     Dosage: 25 MG, UNK
     Route: 065
     Dates: start: 20150721

REACTIONS (1)
  - Muscular weakness [Recovered/Resolved]

NARRATIVE: CASE EVENT DATE: 20150621
